FAERS Safety Report 6534797-1 (Version None)
Quarter: 2010Q1

REPORT INFORMATION
  Report Type: 
  Country: None (occurrence: None)
  Receive Date: 20100112
  Receipt Date: 20100104
  Transmission Date: 20100710
  Serious: Yes (Hospitalization)
  Sender: FDA-Public Use
  Company Number: US-ELI_LILLY_AND_COMPANY-US200911005276

PATIENT
  Age: 71 Year
  Sex: Male

DRUGS (12)
  1. BYETTA [Suspect]
     Indication: TYPE 2 DIABETES MELLITUS
     Dosage: 5 UG, 2/D
     Route: 058
     Dates: start: 20060615, end: 20060701
  2. BYETTA [Suspect]
     Dosage: 10 UG, 2/D
     Dates: start: 20060701, end: 20091115
  3. AVANDAMET [Concomitant]
     Indication: TYPE 2 DIABETES MELLITUS
     Dosage: UNK, 2/D
     Dates: start: 20040426
  4. VASOTEC [Concomitant]
     Indication: HYPERTENSION
     Dosage: UNK, 2/D
     Dates: start: 20010101
  5. SYNTHROID [Concomitant]
     Dosage: UNK, EACH MORNING
     Dates: start: 20010101
  6. ZOCOR [Concomitant]
     Indication: HYPERLIPIDAEMIA
     Dosage: UNK, EACH EVENING
     Dates: start: 20070501
  7. NORVASC [Concomitant]
     Indication: HYPERTENSION
     Dosage: UNK, EACH MORNING
     Dates: start: 20010101
  8. TRICOR [Concomitant]
     Indication: HYPERLIPIDAEMIA
     Dosage: UNK, EACH EVENING
     Dates: start: 20051101
  9. HYDROCHLOROTHIAZIDE [Concomitant]
     Indication: HYPERTENSION
     Dates: start: 20090101
  10. ASPIRIN [Concomitant]
     Indication: CORONARY ARTERY DISEASE
     Dosage: UNK, EACH MORNING
     Dates: start: 20010101
  11. PROCARDIA [Concomitant]
  12. FLOMAX [Concomitant]

REACTIONS (6)
  - BLOOD CALCIUM INCREASED [None]
  - CHOLELITHIASIS [None]
  - GALLBLADDER DISORDER [None]
  - HEPATIC STEATOSIS [None]
  - PANCREATITIS [None]
  - WEIGHT DECREASED [None]
